FAERS Safety Report 7370770-1 (Version None)
Quarter: 2011Q1

REPORT INFORMATION
  Report Type: 
  Country: None (occurrence: None)
  Receive Date: 20110324
  Receipt Date: 20110311
  Transmission Date: 20110831
  Serious: Yes (Other)
  Sender: FDA-Public Use
  Company Number: BR-AMGEN-BRASP2011014661

PATIENT
  Age: 56 Year
  Sex: Female
  Weight: 68 kg

DRUGS (4)
  1. OMEPRAZOLE [Concomitant]
     Indication: GASTRIC DISORDER
     Dosage: UNK
     Dates: start: 20010101
  2. ENBREL [Suspect]
     Indication: PRODUCT USED FOR UNKNOWN INDICATION
     Dosage: 50 MG, WEEKLY
     Route: 058
     Dates: start: 20100101
  3. TEUTOFORMIN [Concomitant]
     Indication: DIABETES MELLITUS
     Dosage: UNK
     Dates: start: 20101201
  4. PURAN T4 [Concomitant]
     Indication: THYROID DISORDER
     Dosage: 125 MG, UNK
     Dates: start: 20080101

REACTIONS (9)
  - FUNGAL INFECTION [None]
  - ARTHRALGIA [None]
  - ACNE PUSTULAR [None]
  - DIABETES MELLITUS [None]
  - NEURALGIA [None]
  - DRY SKIN [None]
  - LIBIDO DECREASED [None]
  - SKIN SENSITISATION [None]
  - BLISTER [None]
